FAERS Safety Report 7875632-9 (Version None)
Quarter: 2011Q4

REPORT INFORMATION
  Report Type: 
  Country: None (occurrence: None)
  Receive Date: 20111031
  Receipt Date: 20111020
  Transmission Date: 20120403
  Serious: Yes (Hospitalization)
  Sender: FDA-Public Use
  Company Number: BR-ASTRAZENECA-2011SE63853

PATIENT
  Age: 41 Year

DRUGS (5)
  1. ALPRAZOLAM [Suspect]
     Route: 048
  2. DESVENLAFAXYNE MONOHYDRATE [Suspect]
     Route: 048
  3. SEROQUEL [Suspect]
     Route: 048
  4. AMITRIPTYLINE HCL [Suspect]
     Route: 048
  5. CLONAZEPAM [Suspect]
     Route: 048

REACTIONS (2)
  - DEPRESSED LEVEL OF CONSCIOUSNESS [None]
  - SUICIDE ATTEMPT [None]
